FAERS Safety Report 23853469 (Version 2)
Quarter: 2024Q2

REPORT INFORMATION
  Report Type: Spontaneous
  Country: NL (occurrence: NL)
  Receive Date: 20240514
  Receipt Date: 20240531
  Transmission Date: 20240716
  Serious: Yes (Life-Threatening, Other)
  Sender: FDA-Public Use
  Company Number: NL-LRB-00968359

PATIENT
  Age: 55 Year
  Sex: Female
  Weight: 96 kg

DRUGS (10)
  1. NAPROXEN [Suspect]
     Active Substance: NAPROXEN
     Indication: Pain
     Dosage: 500 MILLIGRAM, ONCE A DAY (^S AVONDS 1 TABLET)
     Route: 065
     Dates: start: 20240321, end: 20240415
  2. AMLODIPINE [Concomitant]
     Active Substance: AMLODIPINE BESYLATE
     Indication: Product used for unknown indication
     Dosage: UNK (TABLET, 5 MG (MILLIGRAM))
     Route: 065
  3. ATORVASTATIN [Concomitant]
     Active Substance: ATORVASTATIN
     Indication: Product used for unknown indication
     Dosage: UNK (TABLET, 10 MG (MILLIGRAM))
     Route: 065
  4. FLUTICASONE FUROATE\UMECLIDINIUM BROMIDE\VILANTEROL TRIFENATATE [Concomitant]
     Active Substance: FLUTICASONE FUROATE\UMECLIDINIUM BROMIDE\VILANTEROL TRIFENATATE
     Indication: Product used for unknown indication
     Dosage: UNK (ELLIPTA)
     Route: 065
  5. ETANERCEPT [Concomitant]
     Active Substance: ETANERCEPT
     Indication: Product used for unknown indication
     Dosage: UNK (INJECTIEVLOEISTOF, 50 MG/ML (MILLIGRAM PER MILLILITER))
     Route: 065
  6. INSULIN NOS [Concomitant]
     Active Substance: INSULIN NOS
     Indication: Product used for unknown indication
     Dosage: UNK (SUSPENSIE VOOR INJECTIE, 100 IE/ML (EENHEDEN PER MILLILITER))
     Route: 065
  7. MIRTAZAPINE [Concomitant]
     Active Substance: MIRTAZAPINE
     Indication: Product used for unknown indication
     Dosage: UNK (TABLET, 15 MG (MILLIGRAM))
     Route: 065
  8. METFORMIN HYDROCHLORIDE [Concomitant]
     Active Substance: METFORMIN HYDROCHLORIDE
     Indication: Product used for unknown indication
     Dosage: UNK (TABLET, 500 MG (MILLIGRAM))
     Route: 065
  9. OMEPRAZOLE [Concomitant]
     Active Substance: DONEPEZIL HYDROCHLORIDE\OMEPRAZOLE\OMEPRAZOLE MAGNESIUM
     Indication: Product used for unknown indication
     Dosage: UNK (MAAGSAPRESISTENTE CAPSULE, 20 MG (MILLIGRAM))
     Route: 065
  10. ALBUTEROL [Concomitant]
     Active Substance: ALBUTEROL
     Indication: Product used for unknown indication
     Dosage: UNK (AEROSOL, 100 ?G/DOSIS (MICROGRAM PER DOSIS))
     Route: 065

REACTIONS (5)
  - Choking [Recovered/Resolved]
  - Foreign body in throat [Recovered/Resolved]
  - Product coating issue [Recovered/Resolved]
  - Product complaint [Recovered/Resolved]
  - Product size issue [Recovered/Resolved]
